FAERS Safety Report 15366897 (Version 2)
Quarter: 2018Q4

REPORT INFORMATION
  Report Type: Spontaneous
  Country: FR (occurrence: FR)
  Receive Date: 20180910
  Receipt Date: 20180926
  Transmission Date: 20190204
  Serious: Yes (Death, Other)
  Sender: FDA-Public Use
  Company Number: FR-MYLANLABS-2018M1065824

PATIENT

DRUGS (32)
  1. CISPLATIN. [Suspect]
     Active Substance: CISPLATIN
     Indication: NON-HODGKIN^S LYMPHOMA
     Dosage: 100 MG/M2, QD (DAY 1)
     Route: 065
  2. DOXORUBICIN [Suspect]
     Active Substance: DOXORUBICIN
     Indication: NON-HODGKIN^S LYMPHOMA
     Dosage: 75 MG/M2, QD (DAY 1, CYCLE 4)
     Route: 065
  3. VINCRISTINE [Suspect]
     Active Substance: VINCRISTINE
     Indication: NON-HODGKIN^S LYMPHOMA
     Dosage: 2 MG, QD (DAY 1, CYCLE 2)
     Route: 065
  4. PREDNISONE. [Suspect]
     Active Substance: PREDNISONE
     Dosage: QD (DAY 1 TO DAY 4, CYCLE 4)
     Route: 065
  5. DOXORUBICIN [Suspect]
     Active Substance: DOXORUBICIN
     Dosage: 75 MG/M2, QD (DAY 1, CYCLE 1)
     Route: 065
  6. VINCRISTINE [Suspect]
     Active Substance: VINCRISTINE
     Dosage: 2 MG, QD (DAY 1, CYCLE 1)
     Route: 065
  7. ENDOXAN 1000 MG, POUDRE POUR SOLUTIONINJECTABLE/00021102/ [Suspect]
     Active Substance: CYCLOPHOSPHAMIDE
     Dosage: 4000 MG/M2, QD (CYCLE 3 AT DAY 1)
     Route: 065
  8. ENDOXAN  1000 MG, POUDRE POUR SOLUTIONINJECTABLE/00021102/ [Suspect]
     Active Substance: CYCLOPHOSPHAMIDE
     Dosage: 6000 MG/M2, CYCLE (HIGH DOSE CYCLE 1 AT DAY 1)
     Route: 065
  9. ENDOXAN  1000 MG, POUDRE POUR SOLUTIONINJECTABLE/00021102/ [Suspect]
     Active Substance: CYCLOPHOSPHAMIDE
     Indication: NON-HODGKIN^S LYMPHOMA
     Dosage: 4000 MG/M2, QD (CYCLE 4 AT DAY 1)
     Route: 065
  10. ENDOXAN  1000 MG, POUDRE POUR SOLUTIONINJECTABLE/00021102/ [Suspect]
     Active Substance: CYCLOPHOSPHAMIDE
     Dosage: 500 MG/M2, CYCLE (DAY 1)
     Route: 065
  11. CIPROFLOXACIN. [Concomitant]
     Active Substance: CIPROFLOXACIN
     Indication: PROPHYLAXIS
     Dosage: 1500 MG, QD
     Route: 048
  12. PREDNISONE. [Suspect]
     Active Substance: PREDNISONE
     Indication: NON-HODGKIN^S LYMPHOMA
     Dosage: QD (DAY 1 TO DAY 4, CYCLE 1)
     Route: 065
  13. PREDNISONE. [Suspect]
     Active Substance: PREDNISONE
     Dosage: QD (DAY 1 TO DAY 4, CYCLE 3)
     Route: 065
  14. PREDNISONE. [Suspect]
     Active Substance: PREDNISONE
     Dosage: QD (DAY 1 TO DAY 4, CYCLE 2)
     Route: 065
  15. UROMITEXAN  400 MG, SOLUTION INJECTABLE IV [Suspect]
     Active Substance: MESNA
     Indication: NON-HODGKIN^S LYMPHOMA
     Dosage: UNK(MESNA WAS INFUSED BEFORE, AND 4 HOURS AND 8 H AFTER EACH CYCLOPHOSPHAMIDE INFUSION)
     Route: 065
  16. PREDNISONE. [Suspect]
     Active Substance: PREDNISONE
     Dosage: QD (DAY 1 TO DAY 4)
     Route: 065
  17. UROMITEXAN  400 MG, SOLUTION INJECTABLE IV [Suspect]
     Active Substance: MESNA
     Dosage: 500 MG/M2, UNK
     Route: 065
  18. UROMITEXAN  400 MG, SOLUTION INJECTABLE IV [Suspect]
     Active Substance: MESNA
     Dosage: 4000 MG/M2, CYCLE 4 AT DAY 1
     Route: 065
  19. VINCRISTINE [Suspect]
     Active Substance: VINCRISTINE
     Dosage: 2 MG, QD (DAY 1, CYCLE 4)
     Route: 065
  20. PENICILLIN G                       /00000901/ [Concomitant]
     Active Substance: PENICILLIN G
     Indication: PROPHYLAXIS
     Dosage: 2 UNK,QD (1 * 10^6 TWICE DAILY)
     Route: 048
  21. VINCRISTINE [Suspect]
     Active Substance: VINCRISTINE
     Dosage: 2 MG, QD (DAY 1, CYCLE 3)
     Route: 065
  22. VINCRISTINE [Suspect]
     Active Substance: VINCRISTINE
     Dosage: 2 MG, QD (DAY 1)
     Route: 065
  23. METHOTREXATE. [Concomitant]
     Active Substance: METHOTREXATE
     Indication: PROPHYLAXIS
     Dosage: 12 MG/M2, CYCLE(PATIENT RECEIVED C1 AND C2 IN OUTPATIENT SETTING AND C3 AND C4 IN HOSPITAL.)
     Route: 037
  24. DOXORUBICIN [Suspect]
     Active Substance: DOXORUBICIN
     Dosage: 75 MG/M2, QD (DAY 1, CYCLE 3)
     Route: 065
  25. UROMITEXAN  400 MG, SOLUTION INJECTABLE IV [Suspect]
     Active Substance: MESNA
     Dosage: 4000 MG/M2, CYCLE 3 AT DAY 1
     Route: 065
  26. UROMITEXAN  400 MG, SOLUTION INJECTABLE IV [Suspect]
     Active Substance: MESNA
     Dosage: 500 MG/M2, HIGH DOSE CYCLE 1 AT DAY 1
     Route: 065
  27. FILGRASTIM [Concomitant]
     Active Substance: FILGRASTIM
     Indication: PRODUCT USED FOR UNKNOWN INDICATION
     Dosage: STARTED AT DAY 6 FOR MINIMUM OF 7 DAYS
     Route: 058
  28. ETOPOSIDE. [Suspect]
     Active Substance: ETOPOSIDE
     Indication: NON-HODGKIN^S LYMPHOMA
     Dosage: 250 MG/M2, QD (DAY 1 AND DAY 2)
     Route: 065
  29. DOXORUBICIN [Suspect]
     Active Substance: DOXORUBICIN
     Dosage: 75 MG/M2, QD (DAY 1, CYCLE 2)
     Route: 065
  30. UROMITEXAN  400 MG, SOLUTION INJECTABLE IV [Suspect]
     Active Substance: MESNA
     Dosage: 4000 MG/M2, CYCLE 2 AT DAY 1
     Route: 065
  31. ENDOXAN  1000 MG, POUDRE POUR SOLUTIONINJECTABLE/00021102/ [Suspect]
     Active Substance: CYCLOPHOSPHAMIDE
     Dosage: 4000 MG/M2, (CYCLE 2 AT DAY 1)
     Route: 065
  32. ENDOXAN  1000 MG, POUDRE POUR SOLUTIONINJECTABLE/00021102/ [Suspect]
     Active Substance: CYCLOPHOSPHAMIDE
     Dosage: 4000 MG/M2, CYCLE (CYCLE 3 AT DAY 1)
     Route: 065

REACTIONS (2)
  - Nephropathy toxic [Recovered/Resolved]
  - Malignant neoplasm progression [Fatal]
